FAERS Safety Report 22162282 (Version 1)
Quarter: 2023Q1

REPORT INFORMATION
  Report Type: Spontaneous
  Country: US (occurrence: None)
  Receive Date: 20230331
  Receipt Date: 20230331
  Transmission Date: 20230418
  Serious: Yes (Other)
  Sender: FDA-Public Use
  Company Number: 2023A071552

PATIENT
  Age: 29159 Day
  Sex: Female
  Weight: 86.2 kg

DRUGS (2)
  1. FARXIGA [Suspect]
     Active Substance: DAPAGLIFLOZIN PROPANEDIOL
     Indication: Type 2 diabetes mellitus
     Route: 048
     Dates: start: 20230217, end: 20230317
  2. FARXIGA [Suspect]
     Active Substance: DAPAGLIFLOZIN PROPANEDIOL
     Indication: Chronic kidney disease
     Route: 048
     Dates: start: 20230217, end: 20230317

REACTIONS (5)
  - Hypoglycaemia [Unknown]
  - Loss of consciousness [Unknown]
  - Diabetes mellitus inadequate control [Unknown]
  - Blood pressure ambulatory increased [Unknown]
  - Cold sweat [Unknown]

NARRATIVE: CASE EVENT DATE: 20230317
